FAERS Safety Report 18351945 (Version 2)
Quarter: 2020Q4

REPORT INFORMATION
  Report Type: Spontaneous
  Country: DE (occurrence: DE)
  Receive Date: 20201006
  Receipt Date: 20201026
  Transmission Date: 20210114
  Serious: Yes (Death, Hospitalization, Other)
  Sender: FDA-Public Use
  Company Number: NVSC2020DE269636

PATIENT
  Age: 63 Year
  Sex: Male
  Weight: 56 kg

DRUGS (2)
  1. DOCETAXEL. [Suspect]
     Active Substance: DOCETAXEL
     Indication: LUNG ADENOCARCINOMA
     Dosage: FORMULATION: LIQUID DAILY DOSE: 75 MG/M2 BODY SURFACE AREA
     Route: 065
     Dates: start: 20200622, end: 20200817
  2. VARGATEF [Suspect]
     Active Substance: NINTEDANIB
     Indication: LUNG ADENOCARCINOMA
     Dosage: 200 MG (0.5 DAY)
     Route: 065
     Dates: start: 20200623, end: 20200902

REACTIONS (3)
  - Neutrophil count decreased [Recovered/Resolved]
  - Acute kidney injury [Recovered/Resolved]
  - Anorectal infection [Fatal]

NARRATIVE: CASE EVENT DATE: 20200629
